FAERS Safety Report 20461891 (Version 2)
Quarter: 2022Q1

REPORT INFORMATION
  Report Type: Spontaneous
  Country: PL (occurrence: PL)
  Receive Date: 20220211
  Receipt Date: 20220301
  Transmission Date: 20220423
  Serious: Yes (Life-Threatening)
  Sender: FDA-Public Use
  Company Number: PL-SUN PHARMACEUTICAL INDUSTRIES LTD-2022RR-326609

PATIENT
  Age: 15 Year
  Sex: Male

DRUGS (2)
  1. ISOTRETINOIN [Suspect]
     Active Substance: ISOTRETINOIN
     Indication: Acne
     Dosage: INITIALLY 30 MG / DAY IN 2 DIVIDED DOSES, AFTER A MONTH 40 MG / DAY IN 2 DIVIDED DOSES
     Route: 048
     Dates: start: 20211119, end: 20220120
  2. ISOTRETINOIN [Suspect]
     Active Substance: ISOTRETINOIN
     Indication: Acne
     Dosage: INITIALLY 30 MG / DAY IN 2 DIVIDED DOSES, AFTER A MONTH 40 MG / DAY IN 2 DIVIDED DOSES
     Route: 048
     Dates: start: 20211119, end: 20220120

REACTIONS (2)
  - Suicidal ideation [Recovering/Resolving]
  - Childhood depression [Recovering/Resolving]

NARRATIVE: CASE EVENT DATE: 20220101
